FAERS Safety Report 24998129 (Version 1)
Quarter: 2025Q1

REPORT INFORMATION
  Report Type: Spontaneous
  Country: US (occurrence: US)
  Receive Date: 20250222
  Receipt Date: 20250222
  Transmission Date: 20250409
  Serious: No
  Sender: SANOFI AVENTIS
  Company Number: US-SA-2025SA045313

PATIENT
  Age: 68 Year
  Sex: Female
  Weight: 51.701 kg

DRUGS (1)
  1. DUPIXENT [Suspect]
     Active Substance: DUPILUMAB
     Indication: Dermatitis atopic
     Dosage: 300 MG, QOW
     Route: 058
     Dates: start: 20250201

REACTIONS (3)
  - Dermatitis atopic [Unknown]
  - Rash [Unknown]
  - Pain of skin [Unknown]

NARRATIVE: CASE EVENT DATE: 20250201
